FAERS Safety Report 18864701 (Version 1)
Quarter: 2021Q1

REPORT INFORMATION
  Report Type: Spontaneous
  Country: US (occurrence: US)
  Receive Date: 20210208
  Receipt Date: 20210208
  Transmission Date: 20210420
  Serious: Yes (Other)
  Sender: FDA-Public Use
  Company Number: US-SYNEX-T202100470

PATIENT
  Sex: Male

DRUGS (3)
  1. INOMAX [Suspect]
     Active Substance: NITRIC OXIDE
     Indication: COVID-19
     Dosage: 5 PPM (INHALATION)
     Route: 055
     Dates: start: 20210126, end: 202101
  2. INOMAX [Suspect]
     Active Substance: NITRIC OXIDE
     Dosage: 5 PPM (INHALATION)
     Route: 055
     Dates: start: 202101
  3. INOMAX [Suspect]
     Active Substance: NITRIC OXIDE
     Dosage: 4 PPM (INHALATION)
     Route: 055
     Dates: start: 202101, end: 202101

REACTIONS (4)
  - Product use in unapproved indication [Unknown]
  - Product use issue [Unknown]
  - Oxygen saturation decreased [Recovered/Resolved]
  - Device issue [Recovered/Resolved]

NARRATIVE: CASE EVENT DATE: 20210126
